FAERS Safety Report 9403172 (Version 2)
Quarter: 2013Q3

REPORT INFORMATION
  Report Type: Report from Study
  Country: DE (occurrence: DE)
  Receive Date: 20130716
  Receipt Date: 20130828
  Transmission Date: 20140515
  Serious: Yes (Hospitalization)
  Sender: FDA-Public Use
  Company Number: DE-VIIV HEALTHCARE LIMITED-Z0020275A

PATIENT
  Age: 41 Year
  Sex: Male
  Weight: 64 kg

DRUGS (2)
  1. DOLUTEGRAVIR [Suspect]
     Indication: HIV INFECTION
     Dosage: 1TAB PER DAY
     Route: 048
     Dates: start: 20110413
  2. ABACAVIR SULFATE + LAMIVUDINE [Suspect]
     Indication: HIV INFECTION
     Dosage: 1TAB PER DAY
     Route: 048
     Dates: start: 20110413

REACTIONS (3)
  - Schizophrenia, paranoid type [Not Recovered/Not Resolved]
  - Depression [Not Recovered/Not Resolved]
  - Suicidal ideation [Recovered/Resolved]
